FAERS Safety Report 4932824-6 (Version None)
Quarter: 2006Q1

REPORT INFORMATION
  Report Type: 
  Country: None (occurrence: None)
  Receive Date: 20060306
  Receipt Date: 20060209
  Transmission Date: 20060701
  Serious: Yes (Death)
  Sender: FDA-Public Use
  Company Number: US-AMGEN-US168234

PATIENT
  Sex: Male

DRUGS (3)
  1. NEULASTA - PREFILLED SYRINGE [Suspect]
     Indication: CHEMOTHERAPY
     Dates: end: 20051101
  2. ATIVAN [Concomitant]
  3. MORPHINE [Concomitant]

REACTIONS (3)
  - DISEASE PROGRESSION [None]
  - HODGKIN'S DISEASE [None]
  - MALIGNANT NEOPLASM PROGRESSION [None]
